FAERS Safety Report 6154114-9 (Version None)
Quarter: 2009Q2

REPORT INFORMATION
  Report Type: 
  Country: None (occurrence: None)
  Receive Date: 20090414
  Receipt Date: 20090408
  Transmission Date: 20091009
  Serious: Yes (Life-Threatening, Hospitalization, Other)
  Sender: FDA-Public Use
  Company Number: CA-BAYER-200911103BCC

PATIENT
  Age: 53 Year
  Sex: Female
  Weight: 75 kg

DRUGS (5)
  1. ASPIRIN [Suspect]
     Indication: DRUG USE FOR UNKNOWN INDICATION
     Dosage: TOTAL DAILY DOSE: 81 MG  UNIT DOSE: 81 MG
     Route: 048
  2. CARVEDILOL [Concomitant]
  3. PERINDOPRIL ERBUMINE [Concomitant]
  4. METFORMIN HCL [Concomitant]
  5. PROPAFENONE HCL [Concomitant]

REACTIONS (5)
  - FATIGUE [None]
  - GAIT DISTURBANCE [None]
  - HAEMOGLOBIN DECREASED [None]
  - HYPOTENSION [None]
  - OESOPHAGEAL DISORDER [None]
